FAERS Safety Report 20218778 (Version 1)
Quarter: 2021Q4

REPORT INFORMATION
  Report Type: Spontaneous
  Country: US (occurrence: US)
  Receive Date: 20211222
  Receipt Date: 20211222
  Transmission Date: 20220303
  Serious: No
  Sender: FDA-Public Use
  Company Number: US-BioHaven Pharmaceuticals-2021BHV000718

PATIENT
  Sex: Female

DRUGS (1)
  1. NURTEC ODT [Suspect]
     Active Substance: RIMEGEPANT SULFATE
     Indication: Product used for unknown indication
     Dosage: I WAS TAKING IT EVERY DAY FOR ABOUT A WEEK. THEN I WENT TO EVERY OTHER DAY.
     Route: 048

REACTIONS (3)
  - Adverse event [Unknown]
  - Discomfort [Unknown]
  - Nervousness [Unknown]
